FAERS Safety Report 6594053-2 (Version None)
Quarter: 2010Q1

REPORT INFORMATION
  Report Type: 
  Country: None (occurrence: None)
  Receive Date: 20100222
  Receipt Date: 20100216
  Transmission Date: 20100710
  Serious: Yes (Hospitalization, Other)
  Sender: FDA-Public Use
  Company Number: US-ASTRAZENECA-2010SE07009

PATIENT
  Age: 74 Year
  Sex: Female
  Weight: 63.5 kg

DRUGS (5)
  1. TOPROL-XL [Suspect]
     Route: 048
  2. TOPROL-XL [Suspect]
     Route: 048
  3. TOPROL-XL [Suspect]
     Route: 048
  4. KLONIPINE [Concomitant]
     Indication: ANXIETY
  5. OXYTOCIN [Concomitant]
     Indication: PAIN

REACTIONS (8)
  - ASTHENIA [None]
  - BLADDER PERFORATION [None]
  - CARDIAC OPERATION [None]
  - COLECTOMY [None]
  - DIVERTICULITIS [None]
  - MUSCULAR WEAKNESS [None]
  - PAIN [None]
  - UROSEPSIS [None]
